FAERS Safety Report 11830032 (Version 2)
Quarter: 2016Q1

REPORT INFORMATION
  Report Type: Spontaneous
  Country: US (occurrence: US)
  Receive Date: 20151213
  Receipt Date: 20160220
  Transmission Date: 20160525
  Serious: No
  Sender: FDA-Public Use
  Company Number: US-ASTRAZENECA-2015SF21924

PATIENT
  Age: 25154 Day
  Sex: Female
  Weight: 40.8 kg

DRUGS (4)
  1. VITAMIN D [Concomitant]
     Active Substance: CHOLECALCIFEROL
     Route: 048
  2. ALPRAZOLAM. [Concomitant]
     Active Substance: ALPRAZOLAM
     Indication: ANXIETY
     Route: 048
  3. SYMBICORT [Suspect]
     Active Substance: BUDESONIDE\FORMOTEROL FUMARATE DIHYDRATE
     Indication: CHRONIC OBSTRUCTIVE PULMONARY DISEASE
     Dosage: 160 OVER 4.5 2 PUFFS TWICE A DAY
     Route: 055
     Dates: start: 20151114
  4. SYMBICORT [Suspect]
     Active Substance: BUDESONIDE\FORMOTEROL FUMARATE DIHYDRATE
     Indication: CHRONIC OBSTRUCTIVE PULMONARY DISEASE
     Dosage: 160 OVER 4.5 2 PUFFS TWICE A DAY
     Route: 055

REACTIONS (3)
  - Visual impairment [Unknown]
  - Hypertension [Unknown]
  - Device failure [Unknown]

NARRATIVE: CASE EVENT DATE: 20151114
